FAERS Safety Report 5576466-0 (Version None)
Quarter: 2007Q4

REPORT INFORMATION
  Report Type: 
  Country: None (occurrence: None)
  Receive Date: 20071228
  Receipt Date: 20071221
  Transmission Date: 20080405
  Serious: Yes (Hospitalization)
  Sender: FDA-Public Use
  Company Number: CA-SANOFI-SYNTHELABO-F01200701725

PATIENT
  Sex: Male

DRUGS (6)
  1. CITALOPRAM [Concomitant]
     Dates: start: 20070410
  2. BEVACIZUMAB [Suspect]
     Route: 042
  3. LEUCOVORIN [Suspect]
     Route: 042
  4. FLUOROURACIL [Suspect]
     Route: 042
  5. OXALIPLATIN [Suspect]
     Indication: COLON CANCER
     Route: 042
  6. GLYBURIDE [Concomitant]
     Dates: start: 20070502

REACTIONS (1)
  - PORTAL VEIN THROMBOSIS [None]
